FAERS Safety Report 5156386-6 (Version None)
Quarter: 2006Q4

REPORT INFORMATION
  Report Type: 
  Country: None (occurrence: None)
  Receive Date: 20061122
  Receipt Date: 20061113
  Transmission Date: 20070319
  Serious: Yes (Hospitalization, Other)
  Sender: FDA-Public Use
  Company Number: SE-NOVOPROD-258666

PATIENT
  Age: 59 Year
  Sex: Female
  Weight: 62.7 kg

DRUGS (1)
  1. ACTIVELLE [Suspect]
     Dosage: .1 MG/0,25 MG, UNK
     Route: 048

REACTIONS (1)
  - BREAST CANCER [None]
